FAERS Safety Report 15643596 (Version 1)
Quarter: 2018Q4

REPORT INFORMATION
  Report Type: Spontaneous
  Country: CA (occurrence: CA)
  Receive Date: 20181121
  Receipt Date: 20181121
  Transmission Date: 20190205
  Serious: Yes (Other)
  Sender: FDA-Public Use
  Company Number: CA-PFIZER INC-2018473820

PATIENT
  Sex: Male

DRUGS (1)
  1. METHOTREXATE SODIUM. [Suspect]
     Active Substance: METHOTREXATE SODIUM
     Dosage: 25 MG, UNK
     Route: 058
     Dates: start: 2014

REACTIONS (5)
  - Treatment failure [Unknown]
  - Cellulitis [Unknown]
  - Abscess intestinal [Recovered/Resolved]
  - Condition aggravated [Unknown]
  - Intestinal fistula [Unknown]
